FAERS Safety Report 7429101 (Version 10)
Quarter: 2013Q1

REPORT INFORMATION
  Report Type: Spontaneous
  Country: CA (occurrence: CA)
  Receive Date: 20100623
  Receipt Date: 20130123
  Transmission Date: 20140127
  Serious: Yes (Hospitalization, Other)
  Sender: FDA-Public Use
  Company Number: CA-ROCHE-GNE303236

PATIENT
  Age: 44 Year
  Sex: Female
  Weight: 83.4 kg

DRUGS (9)
  1. XOLAIR [Suspect]
     Indication: ASTHMA
     Dosage: 300 MG, Q2W, VIAL
     Route: 058
     Dates: start: 20090422
  2. XOLAIR [Suspect]
     Route: 065
     Dates: start: 20090619
  3. XOLAIR [Suspect]
     Route: 065
     Dates: start: 20111207
  4. AVELOX [Suspect]
     Indication: PRODUCT USED FOR UNKNOWN INDICATION
     Route: 065
  5. SINGULAIR [Concomitant]
     Indication: PRODUCT USED FOR UNKNOWN INDICATION
  6. SYMBICORT [Concomitant]
     Indication: PRODUCT USED FOR UNKNOWN INDICATION
  7. ALVESCO [Concomitant]
     Indication: PRODUCT USED FOR UNKNOWN INDICATION
  8. PREDNISONE [Concomitant]
     Indication: PRODUCT USED FOR UNKNOWN INDICATION
     Route: 065
  9. PREDNISONE [Concomitant]
     Route: 065

REACTIONS (14)
  - Nasal polyps [Unknown]
  - Asthma [Unknown]
  - Pharyngeal oedema [Unknown]
  - Blood pressure decreased [Unknown]
  - Hypoaesthesia oral [Unknown]
  - Cough [Unknown]
  - Rash pruritic [Unknown]
  - Pruritus [Unknown]
  - Dizziness [Unknown]
  - Upper respiratory tract infection [Unknown]
  - Dyspnoea [Unknown]
  - Pain in extremity [Unknown]
  - Chest discomfort [Unknown]
  - Stress [Unknown]
